FAERS Safety Report 14295138 (Version 2)
Quarter: 2017Q4

REPORT INFORMATION
  Report Type: Report from Study
  Country: AU (occurrence: AU)
  Receive Date: 20171218
  Receipt Date: 20171225
  Transmission Date: 20180321
  Serious: Yes (Other)
  Sender: FDA-Public Use
  Company Number: AU-ROCHE-2037322

PATIENT

DRUGS (1)
  1. MYCOPHENOLATE MOFETIL. [Suspect]
     Active Substance: MYCOPHENOLATE MOFETIL
     Indication: AUTOIMMUNE HEPATITIS
     Route: 065

REACTIONS (13)
  - Urinary tract infection [Unknown]
  - Lymphoproliferative disorder [Unknown]
  - Anxiety [Unknown]
  - Insomnia [Unknown]
  - Skin cancer [Unknown]
  - Treatment failure [Unknown]
  - Infection [Unknown]
  - Mood altered [Unknown]
  - Angular cheilitis [Unknown]
  - Alopecia [Unknown]
  - Cytopenia [Unknown]
  - Diarrhoea [Unknown]
  - Nausea [Unknown]
